FAERS Safety Report 5857213-1 (Version None)
Quarter: 2008Q3

REPORT INFORMATION
  Report Type: 
  Country: None (occurrence: None)
  Receive Date: 20080821
  Receipt Date: 20080807
  Transmission Date: 20090109
  Serious: Yes (Death)
  Sender: FDA-Public Use
  Company Number: 230015J08IRL

PATIENT
  Sex: Male

DRUGS (8)
  1. REBIF [Suspect]
     Dosage: 44 MCG, 3 IN 1 WEEKS
     Dates: start: 20060501, end: 20070901
  2. ISOSORBIDFE MONONITRATE [Concomitant]
  3. VENLAFAXINE HCL [Concomitant]
  4. CAPTOPRIL [Concomitant]
  5. TOLTERODINE TARTRATE [Concomitant]
  6. PRAVASTATIN [Concomitant]
  7. ALENDRONATE SODIUM [Concomitant]
  8. LANSOPRAZOLE [Concomitant]

REACTIONS (3)
  - MYOCARDIAL INFARCTION [None]
  - PHARYNGEAL DISORDER [None]
  - WEIGHT DECREASED [None]
